FAERS Safety Report 10957513 (Version 2)
Quarter: 2015Q2

REPORT INFORMATION
  Report Type: Spontaneous
  Country: AU (occurrence: AU)
  Receive Date: 20150326
  Receipt Date: 20150421
  Transmission Date: 20150821
  Serious: Yes (Hospitalization)
  Sender: FDA-Public Use
  Company Number: AU-CELGENE-AUS-2015031203

PATIENT
  Age: 71 Year
  Sex: Female
  Weight: 59.8 kg

DRUGS (5)
  1. AZACITIDINE. [Suspect]
     Active Substance: AZACITIDINE
     Indication: MYELODYSPLASTIC SYNDROME
     Route: 065
     Dates: start: 20150216, end: 20150224
  2. COLOXY AND SENNA [Concomitant]
     Indication: PRODUCT USED FOR UNKNOWN INDICATION
     Route: 065
  3. ROVORVASTATIN [Concomitant]
     Indication: PRODUCT USED FOR UNKNOWN INDICATION
     Route: 065
  4. AZACITIDINE. [Suspect]
     Active Substance: AZACITIDINE
     Route: 065
     Dates: start: 20150316, end: 20150316
  5. PROPANOLOL [Concomitant]
     Active Substance: PROPRANOLOL HYDROCHLORIDE
     Indication: PRODUCT USED FOR UNKNOWN INDICATION
     Route: 065

REACTIONS (3)
  - Febrile neutropenia [Recovered/Resolved]
  - Acute coronary syndrome [Recovered/Resolved]
  - Aortic valve incompetence [Unknown]

NARRATIVE: CASE EVENT DATE: 20150227
